FAERS Safety Report 15118495 (Version 3)
Quarter: 2018Q3

REPORT INFORMATION
  Report Type: Spontaneous
  Country: US (occurrence: US)
  Receive Date: 20180708
  Receipt Date: 20180910
  Transmission Date: 20181010
  Serious: No
  Sender: FDA-Public Use
  Company Number: PHEH2018US028078

PATIENT
  Sex: Male

DRUGS (1)
  1. VOTRIENT [Suspect]
     Active Substance: PAZOPANIB HYDROCHLORIDE
     Indication: RENAL CANCER
     Dosage: 3 DF, QD (ON EMPTY STOMACH 1 HOUR BEFORE OR 2 HOURS AFTER MEALS)
     Route: 048
     Dates: start: 20180501

REACTIONS (5)
  - Hot flush [Not Recovered/Not Resolved]
  - Rash [Unknown]
  - Hair colour changes [Not Recovered/Not Resolved]
  - Arthralgia [Not Recovered/Not Resolved]
  - Asthenia [Unknown]
